FAERS Safety Report 7247405-1 (Version None)
Quarter: 2011Q1

REPORT INFORMATION
  Report Type: 
  Country: None (occurrence: None)
  Receive Date: 20110127
  Receipt Date: 20110117
  Transmission Date: 20110831
  Serious: Yes (Hospitalization, Other)
  Sender: FDA-Public Use
  Company Number: PHHY2010CA46683

PATIENT
  Sex: Male

DRUGS (14)
  1. EXJADE [Suspect]
     Dosage: 1000MG-2000MG/DAY
     Route: 048
     Dates: start: 20100717, end: 20101029
  2. SPIRONOLACTONE [Concomitant]
  3. VITAMIN D [Concomitant]
  4. LASIX [Concomitant]
  5. HYDRALAZINE HCL [Concomitant]
  6. EXJADE [Suspect]
     Indication: MYELODYSPLASTIC SYNDROME
     Dosage: 1500 MG, QD
     Route: 048
     Dates: start: 20100709
  7. BISOPROLOL [Concomitant]
  8. DIGOXIN [Concomitant]
  9. RANITIDINE [Concomitant]
  10. NITROGLYCERIN [Concomitant]
  11. ASPIRIN [Concomitant]
     Dosage: 80 MG
  12. EXJADE [Suspect]
     Dosage: 1000 MG, UNK
     Route: 048
     Dates: start: 20101020
  13. EXJADE [Suspect]
     Dosage: 500 MG, UNK
     Route: 048
     Dates: start: 20100601
  14. EXJADE [Suspect]
     Dosage: 2000 MG, UNK

REACTIONS (8)
  - RENAL FAILURE [None]
  - CARDIAC FAILURE CONGESTIVE [None]
  - ABDOMINAL PAIN UPPER [None]
  - DIARRHOEA [None]
  - TERMINAL STATE [None]
  - BLOOD CREATININE INCREASED [None]
  - ABDOMINAL DISCOMFORT [None]
  - ABDOMINAL DISTENSION [None]
